FAERS Safety Report 5003147-4 (Version None)
Quarter: 2006Q2

REPORT INFORMATION
  Report Type: 
  Country: None (occurrence: None)
  Receive Date: 20060516
  Receipt Date: 20060420
  Transmission Date: 20061013
  Serious: Yes (Life-Threatening, Hospitalization, Other)
  Sender: FDA-Public Use
  Company Number: GB-NOVOPROD-252564

PATIENT
  Age: 65 Year
  Sex: Male
  Weight: 78 kg

DRUGS (4)
  1. NOVOSEVEN [Suspect]
     Indication: POST PROCEDURAL HAEMORRHAGE
     Dosage: 6 MG, SINGLE
     Route: 042
     Dates: start: 20060414
  2. TRANEXAMIC ACID [Concomitant]
     Dosage: 500 MG, BID
     Route: 042
     Dates: start: 20060414
  3. CALCIUM CHLORIDE                   /00203801/ [Concomitant]
     Dosage: 10 ML/10%, BID
     Route: 042
     Dates: start: 20060414
  4. APROTININ [Concomitant]
     Dosage: 2 UNK, QD
     Route: 042
     Dates: start: 20060414

REACTIONS (2)
  - HAEMODIALYSIS [None]
  - RENAL FAILURE [None]
